FAERS Safety Report 7303260-2 (Version None)
Quarter: 2011Q1

REPORT INFORMATION
  Report Type: 
  Country: None (occurrence: None)
  Receive Date: 20110221
  Receipt Date: 20110209
  Transmission Date: 20110831
  Serious: No
  Sender: FDA-Public Use
  Company Number: US-BIOGENIDEC-2011BI005200

PATIENT
  Age: 27 Year
  Sex: Female

DRUGS (2)
  1. AVONEX [Suspect]
     Indication: MULTIPLE SCLEROSIS
     Route: 030
     Dates: start: 20080612
  2. AVONEX [Suspect]
     Route: 030
     Dates: start: 20100612, end: 20100612

REACTIONS (5)
  - PYREXIA [None]
  - PALLOR [None]
  - BACK PAIN [None]
  - MIGRAINE [None]
  - CHILLS [None]
